FAERS Safety Report 7776995-5 (Version None)
Quarter: 2011Q3

REPORT INFORMATION
  Report Type: 
  Country: None (occurrence: None)
  Receive Date: 20110926
  Receipt Date: 20110926
  Transmission Date: 20111222
  Serious: Yes (Hospitalization)
  Sender: FDA-Public Use
  Company Number: None

PATIENT
  Age: 91 Year
  Sex: Female
  Weight: 56 kg

DRUGS (1)
  1. DRONEDARONE HCL [Suspect]
     Indication: ATRIAL FIBRILLATION

REACTIONS (8)
  - VOMITING [None]
  - HEPATITIS ACUTE [None]
  - HEPATIC CYST [None]
  - HEPATIC STEATOSIS [None]
  - DIZZINESS [None]
  - RENAL FAILURE ACUTE [None]
  - DIARRHOEA [None]
  - NAUSEA [None]
